FAERS Safety Report 7314674-9 (Version None)
Quarter: 2011Q1

REPORT INFORMATION
  Report Type: 
  Country: None (occurrence: None)
  Receive Date: 20110225
  Receipt Date: 20101101
  Transmission Date: 20110831
  Serious: No
  Sender: FDA-Public Use
  Company Number: US-MYLANLABS-2010S1020272

PATIENT
  Age: 17 Year
  Sex: Female

DRUGS (2)
  1. AMNESTEEM [Suspect]
     Route: 048
     Dates: end: 20101029
  2. ORAL CONTRACEPTIVE NOS [Concomitant]
     Dates: end: 20101001

REACTIONS (1)
  - INFECTIOUS MONONUCLEOSIS [None]
